FAERS Safety Report 24211627 (Version 1)
Quarter: 2024Q3

REPORT INFORMATION
  Report Type: Spontaneous
  Country: US (occurrence: US)
  Receive Date: 20240814
  Receipt Date: 20240814
  Transmission Date: 20241017
  Serious: Yes (Hospitalization)
  Sender: MYLAN
  Company Number: US-MYLANLABS-2024M1074803

PATIENT
  Age: 76 Year
  Sex: Female

DRUGS (16)
  1. VANCOMYCIN [Suspect]
     Active Substance: VANCOMYCIN
     Indication: Evidence based treatment
     Dosage: 2 LITER, BOLUS
     Route: 042
  2. DOXYCYCLINE [Suspect]
     Active Substance: DOXYCYCLINE\DOXYCYCLINE HYCLATE
     Indication: Evidence based treatment
     Dosage: UNK
     Route: 065
  3. FUROSEMIDE [Suspect]
     Active Substance: FUROSEMIDE
     Indication: Fluid retention
     Dosage: UNK, INFUSION
     Route: 042
  4. CALCITONIN SALMON [Suspect]
     Active Substance: CALCITONIN SALMON
     Indication: Hypercalcaemia
     Dosage: UNK
     Route: 065
  5. SODIUM CHLORIDE [Suspect]
     Active Substance: SODIUM CHLORIDE
     Indication: Lactic acidosis
     Dosage: 150 MILLILITER, QH [RECEIVED HALF AMPOULE IN THREE AMPOULES OF SODIUM-BICARBONATE]
     Route: 042
  6. PIPERACILLIN AND TAZOBACTAM [Suspect]
     Active Substance: PIPERACILLIN SODIUM\TAZOBACTAM SODIUM
     Indication: Evidence based treatment
     Dosage: 2 LITER, BOLUS
     Route: 042
  7. METRONIDAZOLE [Suspect]
     Active Substance: METRONIDAZOLE
     Indication: Evidence based treatment
     Dosage: UNK
     Route: 065
  8. CEFTRIAXONE [Suspect]
     Active Substance: CEFTRIAXONE\CEFTRIAXONE SODIUM
     Indication: Evidence based treatment
     Dosage: UNK
     Route: 065
  9. DEXTROSE [Suspect]
     Active Substance: DEXTROSE\DEXTROSE MONOHYDRATE
     Indication: Hypoglycaemia
     Dosage: UNK, RECEIVED MIXED IN WATER, INFUSION
     Route: 042
  10. SODIUM BICARBONATE [Suspect]
     Active Substance: SODIUM BICARBONATE
     Indication: Lactic acidosis
     Dosage: 150 MILLILITER, QH [RECEIVED THREE AMPOULES IN HALF AMPOULE OF SODIUM-CHLORIDE], INFUSION
     Route: 042
  11. DEXTROSE [Concomitant]
     Active Substance: DEXTROSE\DEXTROSE MONOHYDRATE
     Indication: Hypoglycaemia
     Dosage: UNK, RECEIVED MIXED IN WATER AT 75CC/H, INFUSION
     Route: 042
  12. PHENYLEPHRINE [Concomitant]
     Active Substance: PHENYLEPHRINE HYDROCHLORIDE
     Indication: Hypotension
     Dosage: UNK
     Route: 065
  13. FLUCONAZOLE [Concomitant]
     Active Substance: FLUCONAZOLE
     Indication: Vulvovaginal candidiasis
     Dosage: UNK
     Route: 065
  14. PAMIDRONIC ACID [Concomitant]
     Active Substance: PAMIDRONIC ACID
     Indication: Hypercalcaemia
     Dosage: UNK
     Route: 065
  15. GABAPENTIN [Concomitant]
     Active Substance: GABAPENTIN
     Indication: Product used for unknown indication
     Dosage: UNK
     Route: 065
  16. DRONABINOL [Concomitant]
     Active Substance: DRONABINOL
     Indication: Product used for unknown indication
     Dosage: 2.5 MILLIGRAM, BID
     Route: 065

REACTIONS (5)
  - Tubulointerstitial nephritis [Recovering/Resolving]
  - Hypercalcaemia [Recovering/Resolving]
  - Fluid retention [Recovering/Resolving]
  - Hypoglycaemia [Unknown]
  - Drug ineffective [Unknown]
